FAERS Safety Report 5230952-1 (Version None)
Quarter: 2007Q1

REPORT INFORMATION
  Report Type: 
  Country: None (occurrence: None)
  Receive Date: 20070206
  Receipt Date: 20070131
  Transmission Date: 20070707
  Serious: Yes (Other)
  Sender: FDA-Public Use
  Company Number: GB-GLAXOSMITHKLINE-B0360758A

PATIENT
  Sex: Female

DRUGS (10)
  1. PAROXETINE HYDROCHLORIDE [Suspect]
     Route: 065
  2. BENDROFLUAZIDE [Concomitant]
  3. LANSOPRAZOLE [Concomitant]
  4. PIOGLITAZONE [Concomitant]
  5. GLICLAZIDE [Concomitant]
  6. METFORMIN HCL [Concomitant]
  7. INSULIN [Concomitant]
  8. TRIFLUOPERAZINE HCL [Concomitant]
  9. LEVOTHYROXINE SODIUM [Concomitant]
  10. METOCLOPRAMIDE [Concomitant]

REACTIONS (7)
  - DEPRESSED MOOD [None]
  - DRUG WITHDRAWAL SYNDROME [None]
  - HOMICIDAL IDEATION [None]
  - INTENTIONAL OVERDOSE [None]
  - INTENTIONAL SELF-INJURY [None]
  - SELF MUTILATION [None]
  - SUICIDAL IDEATION [None]
